FAERS Safety Report 23942366 (Version 2)
Quarter: 2025Q1

REPORT INFORMATION
  Report Type: Spontaneous
  Country: US (occurrence: US)
  Receive Date: 20240605
  Receipt Date: 20250320
  Transmission Date: 20250409
  Serious: No
  Sender: REGENERON
  Company Number: US-REGENERON PHARMACEUTICALS, INC.-2024-052552

PATIENT
  Age: 76 Year
  Sex: Male

DRUGS (4)
  1. EYLEA HD [Suspect]
     Active Substance: AFLIBERCEPT
     Indication: Neovascular age-related macular degeneration
     Route: 031
  2. EYLEA HD [Suspect]
     Active Substance: AFLIBERCEPT
     Indication: Diabetic retinal oedema
     Route: 031
  3. EYLEA HD [Suspect]
     Active Substance: AFLIBERCEPT
     Route: 031
  4. EYLEA HD [Suspect]
     Active Substance: AFLIBERCEPT
     Route: 031

REACTIONS (2)
  - Metamorphopsia [Recovered/Resolved]
  - Vision blurred [Recovered/Resolved]
